FAERS Safety Report 7232018-8 (Version None)
Quarter: 2011Q1

REPORT INFORMATION
  Report Type: 
  Country: None (occurrence: None)
  Receive Date: 20110118
  Receipt Date: 20110111
  Transmission Date: 20110831
  Serious: Yes (Hospitalization)
  Sender: FDA-Public Use
  Company Number: US-US-EMD SERONO, INC.-233112J09USA

PATIENT
  Sex: Female
  Weight: 91 kg

DRUGS (13)
  1. SIMVASTATIN [Concomitant]
     Indication: ATRIAL FIBRILLATION
  2. MALTEC [Concomitant]
  3. COUMADIN [Concomitant]
     Dates: start: 20100701
  4. PROZAC [Concomitant]
     Dates: end: 20091117
  5. METOPROLOL [Concomitant]
     Indication: ATRIAL FIBRILLATION
  6. FISH OIL [Concomitant]
  7. CELEXA [Concomitant]
     Dates: start: 20091117
  8. REBIF [Suspect]
     Indication: MULTIPLE SCLEROSIS
     Route: 058
     Dates: start: 20070813
  9. ENTOCORT EC [Concomitant]
     Indication: CROHN'S DISEASE
     Dates: start: 20090101
  10. ASPIRIN [Concomitant]
  11. UNSPECIFIED MEDICATIONS [Concomitant]
  12. SOTALOL [Concomitant]
     Indication: ATRIAL FIBRILLATION
  13. METOPROLOL [Concomitant]
     Indication: HEART RATE

REACTIONS (6)
  - ATRIAL FLUTTER [None]
  - INFLUENZA LIKE ILLNESS [None]
  - MUSCULOSKELETAL STIFFNESS [None]
  - ATRIAL FIBRILLATION [None]
  - ARRHYTHMIA [None]
  - TACHYCARDIA [None]
